FAERS Safety Report 6354823-2 (Version None)
Quarter: 2009Q3

REPORT INFORMATION
  Report Type: 
  Country: None (occurrence: None)
  Receive Date: 20090914
  Receipt Date: 20090908
  Transmission Date: 20100115
  Serious: Yes (Hospitalization, Other)
  Sender: FDA-Public Use
  Company Number: US-JNJFOC-20090804179

PATIENT
  Sex: Male
  Weight: 116.12 kg

DRUGS (21)
  1. ITRACONAZOLE [Suspect]
     Route: 048
  2. ITRACONAZOLE [Suspect]
     Route: 048
  3. ITRACONAZOLE [Suspect]
     Route: 048
  4. ITRACONAZOLE [Suspect]
     Route: 048
  5. ITRACONAZOLE [Suspect]
     Indication: HISTOPLASMOSIS
     Route: 048
  6. PREDNISONE [Concomitant]
     Route: 065
  7. PREDNISONE [Concomitant]
     Route: 065
  8. ROLAIDS [Concomitant]
     Route: 064
  9. IBUPROFEN [Concomitant]
     Route: 048
  10. OXYCODONE [Concomitant]
     Indication: PAIN
     Dosage: 1 TO 2 TABLETS
     Route: 048
  11. DIAZEPAM [Concomitant]
     Route: 048
  12. ACETAMINOPHEN AND HYDROCODONE BITARTRATE [Concomitant]
     Indication: PAIN
     Dosage: 10-500 MG, 1-2 TABLETS EVERY 4-6 HOURS AS NEEDED
     Route: 048
  13. LITHIUM CARBONATE [Concomitant]
     Route: 048
  14. VIAGRA [Concomitant]
     Dosage: 1 TABLET 1 HOUR BEFORE NEEDED
     Route: 048
  15. SERTRALINE HCL [Concomitant]
     Route: 048
  16. MELOXICAM [Concomitant]
     Route: 048
  17. SOLU-CORTEF [Concomitant]
     Route: 050
  18. FOLIC ACID [Concomitant]
     Route: 048
  19. PROMETHAZINE [Concomitant]
     Dosage: 1-2 TABLETS
     Route: 048
  20. SALSALATE [Concomitant]
     Route: 048
  21. LORTAB [Concomitant]
     Route: 065

REACTIONS (18)
  - ABDOMINAL DISTENSION [None]
  - ABDOMINAL PAIN [None]
  - ABNORMAL FAECES [None]
  - ASTHENIA [None]
  - DRUG DOSE OMISSION [None]
  - DRUG INEFFECTIVE [None]
  - DYSPNOEA [None]
  - FATIGUE [None]
  - GASTROOESOPHAGEAL REFLUX DISEASE [None]
  - HYPERHIDROSIS [None]
  - INGUINAL HERNIA [None]
  - LYMPHADENOPATHY [None]
  - MALAISE [None]
  - PRURITUS [None]
  - PYREXIA [None]
  - RHEUMATOID ARTHRITIS [None]
  - SKIN BURNING SENSATION [None]
  - TREATMENT NONCOMPLIANCE [None]
